FAERS Safety Report 4350650-6 (Version None)
Quarter: 2004Q2

REPORT INFORMATION
  Report Type: 
  Country: None (occurrence: None)
  Receive Date: 20040427
  Receipt Date: 20040414
  Transmission Date: 20050107
  Serious: Yes (Other)
  Sender: FDA-Public Use
  Company Number: 2004017398

PATIENT
  Age: 72 Year
  Sex: Female

DRUGS (3)
  1. PHENYTOIN SODIUM [Suspect]
     Indication: EPILEPSY
     Dosage: 400 MG (DAILY), ORAL
     Route: 048
  2. MIANSERIN (MIANSERIN) [Suspect]
     Indication: DEPRESSION
     Dosage: 60 MG (DAILY), ORAL
     Route: 048
  3. VENFLAFAXINE (VENFLAFAXINE) [Concomitant]

REACTIONS (4)
  - ANTICONVULSANT DRUG LEVEL INCREASED [None]
  - DRUG TOXICITY [None]
  - INFUSION RELATED REACTION [None]
  - PHLEBITIS [None]
